FAERS Safety Report 6115755-8 (Version None)
Quarter: 2009Q1

REPORT INFORMATION
  Report Type: 
  Country: None (occurrence: None)
  Receive Date: 20090313
  Receipt Date: 20090109
  Transmission Date: 20090719
  Serious: No
  Sender: FDA-Public Use
  Company Number: US-ABBOTT-08P-163-0490390-00

PATIENT
  Sex: Male
  Weight: 104.42 kg

DRUGS (2)
  1. HUMIRA [Suspect]
     Indication: PSORIATIC ARTHROPATHY
     Dates: start: 20080301, end: 20080501
  2. HUMIRA [Suspect]
     Indication: PSORIASIS
     Dates: start: 20081119

REACTIONS (3)
  - MALAISE [None]
  - PAIN [None]
  - PSORIASIS [None]
